FAERS Safety Report 20953880 (Version 2)
Quarter: 2024Q1

REPORT INFORMATION
  Report Type: Report from Study
  Country: CA (occurrence: CA)
  Receive Date: 20220614
  Receipt Date: 20240305
  Transmission Date: 20240410
  Serious: Yes (Other)
  Sender: FDA-Public Use
  Company Number: CA-CELLTRION INC.-2022CA009048

PATIENT

DRUGS (5)
  1. TRUXIMA [Suspect]
     Active Substance: RITUXIMAB-ABBS
     Indication: Rheumatoid arthritis
     Dosage: 1000 MG (PATIENT^S LAST INFUSION ON 29 NOV 2021) / DAY 1,15
     Route: 042
     Dates: start: 20210322
  2. TRUXIMA [Suspect]
     Active Substance: RITUXIMAB-ABBS
     Dosage: 500 MG
     Route: 042
     Dates: start: 20230417
  3. TRUXIMA [Suspect]
     Active Substance: RITUXIMAB-ABBS
     Dosage: 1000 MG, DAY 1,15
     Route: 042
  4. ACETAMINOPHEN [Concomitant]
     Active Substance: ACETAMINOPHEN
     Indication: Premedication
     Dosage: 650 MG
     Route: 048
  5. DIPHENHYDRAMINE [Concomitant]
     Active Substance: DIPHENHYDRAMINE
     Indication: Premedication
     Dosage: 50 MG
     Route: 048

REACTIONS (5)
  - Rheumatoid arthritis [Not Recovered/Not Resolved]
  - Condition aggravated [Unknown]
  - Pain [Not Recovered/Not Resolved]
  - Fatigue [Not Recovered/Not Resolved]
  - Intentional product use issue [Unknown]
